FAERS Safety Report 19426055 (Version 1)
Quarter: 2021Q2

REPORT INFORMATION
  Report Type: Spontaneous
  Country: CA (occurrence: CA)
  Receive Date: 20210616
  Receipt Date: 20210616
  Transmission Date: 20210717
  Serious: Yes (Hospitalization, Other)
  Sender: FDA-Public Use
  Company Number: CA-BAYER-2021-156790

PATIENT
  Age: 62 Year
  Sex: Female

DRUGS (14)
  1. CIPRO [Suspect]
     Active Substance: CIPROFLOXACIN HYDROCHLORIDE
     Indication: SINUSITIS
     Dosage: UNK
  2. ACTEMRA [Suspect]
     Active Substance: TOCILIZUMAB
     Indication: RHEUMATOID ARTHRITIS
     Dosage: 616 MG
     Route: 042
  3. AMLODIPINE [Suspect]
     Active Substance: AMLODIPINE BESYLATE
  4. ATIVAN [Concomitant]
     Active Substance: LORAZEPAM
  5. DOMPERIDONE [Suspect]
     Active Substance: DOMPERIDONE
     Indication: HIATUS HERNIA
  6. PERINDOPRIL [Suspect]
     Active Substance: PERINDOPRIL
     Dosage: 8 MG, QD
  7. ATENOLOL. [Concomitant]
     Active Substance: ATENOLOL
  8. HYDROCHLOROTHIAZIDE. [Concomitant]
     Active Substance: HYDROCHLOROTHIAZIDE
  9. IRBESARTAN. [Concomitant]
     Active Substance: IRBESARTAN
  10. CIPRO [Suspect]
     Active Substance: CIPROFLOXACIN HYDROCHLORIDE
     Indication: LOWER RESPIRATORY TRACT INFECTION
     Dosage: UNK
  11. BENTYLOL [Concomitant]
     Active Substance: DICYCLOMINE HYDROCHLORIDE
  12. ACTEMRA [Suspect]
     Active Substance: TOCILIZUMAB
     Indication: RHEUMATOID ARTHRITIS
     Dosage: 544 UNK
     Route: 042
  13. ACTEMRA [Suspect]
     Active Substance: TOCILIZUMAB
     Indication: RHEUMATOID ARTHRITIS
     Dosage: 680 UNK
     Route: 042
  14. ACTEMRA [Suspect]
     Active Substance: TOCILIZUMAB
     Indication: RHEUMATOID ARTHRITIS
     Dosage: 599 MG
     Route: 042

REACTIONS (47)
  - Anxiety [Not Recovered/Not Resolved]
  - Infusion related reaction [Not Recovered/Not Resolved]
  - Loss of personal independence in daily activities [Not Recovered/Not Resolved]
  - Swelling [Not Recovered/Not Resolved]
  - Throat irritation [Not Recovered/Not Resolved]
  - Weight increased [Not Recovered/Not Resolved]
  - Cough [Not Recovered/Not Resolved]
  - Joint swelling [Not Recovered/Not Resolved]
  - Sinusitis [Not Recovered/Not Resolved]
  - White blood cell count decreased [Not Recovered/Not Resolved]
  - Blood cholesterol increased [Not Recovered/Not Resolved]
  - Joint dislocation [Not Recovered/Not Resolved]
  - Nasal congestion [Not Recovered/Not Resolved]
  - Oxygen saturation decreased [Not Recovered/Not Resolved]
  - Palpitations [Not Recovered/Not Resolved]
  - Chronic sinusitis [Not Recovered/Not Resolved]
  - Pain in jaw [Not Recovered/Not Resolved]
  - Red blood cell sedimentation rate increased [Not Recovered/Not Resolved]
  - Urinary tract infection [Not Recovered/Not Resolved]
  - Arthralgia [Not Recovered/Not Resolved]
  - Blood pressure systolic increased [Not Recovered/Not Resolved]
  - Chest pain [Not Recovered/Not Resolved]
  - Heart rate decreased [Not Recovered/Not Resolved]
  - Hip fracture [Not Recovered/Not Resolved]
  - Increased appetite [Not Recovered/Not Resolved]
  - Injection site extravasation [Not Recovered/Not Resolved]
  - Sinus congestion [Not Recovered/Not Resolved]
  - Fungal infection [None]
  - Joint stiffness [Not Recovered/Not Resolved]
  - Lower respiratory tract infection [Not Recovered/Not Resolved]
  - Aphthous ulcer [Not Recovered/Not Resolved]
  - Musculoskeletal pain [Not Recovered/Not Resolved]
  - Oral herpes [Not Recovered/Not Resolved]
  - Pain in extremity [Not Recovered/Not Resolved]
  - Paranasal sinus discomfort [Not Recovered/Not Resolved]
  - Rhinalgia [Not Recovered/Not Resolved]
  - Blood pressure increased [Not Recovered/Not Resolved]
  - Drug interaction [Not Recovered/Not Resolved]
  - Fall [Not Recovered/Not Resolved]
  - Headache [Not Recovered/Not Resolved]
  - Musculoskeletal stiffness [Not Recovered/Not Resolved]
  - Oropharyngeal pain [Not Recovered/Not Resolved]
  - Pain [Not Recovered/Not Resolved]
  - Stress [Not Recovered/Not Resolved]
  - Upper-airway cough syndrome [Not Recovered/Not Resolved]
  - Vulvovaginal burning sensation [Not Recovered/Not Resolved]
  - Vulvovaginal pruritus [Not Recovered/Not Resolved]
